FAERS Safety Report 14172690 (Version 1)
Quarter: 2017Q4

REPORT INFORMATION
  Report Type: Spontaneous
  Country: US (occurrence: None)
  Receive Date: 20171108
  Receipt Date: 20171108
  Transmission Date: 20180321
  Serious: Yes (Life-Threatening, Disabling, Other)
  Sender: FDA-Public Use
  Company Number: None

PATIENT
  Age: 85 Year
  Sex: Male
  Weight: 78.02 kg

DRUGS (10)
  1. FLECAINIDE ACETATE 100MG TABLETS [Suspect]
     Active Substance: FLECAINIDE ACETATE
     Indication: ATRIAL FIBRILLATION
     Route: 048
     Dates: start: 20170923, end: 20170925
  2. ACYCLOVIR. [Concomitant]
     Active Substance: ACYCLOVIR
  3. OCUVITE [Concomitant]
     Active Substance: VITAMINS
  4. ACETAMINOPHEN. [Concomitant]
     Active Substance: ACETAMINOPHEN
  5. BENZONATATE. [Concomitant]
     Active Substance: BENZONATATE
  6. SIMVASTATIN. [Concomitant]
     Active Substance: SIMVASTATIN
  7. VITAMIN B12 [Concomitant]
     Active Substance: CYANOCOBALAMIN
  8. VITAMIN D [Concomitant]
     Active Substance: CHOLECALCIFEROL
  9. ASPIRIN. [Concomitant]
     Active Substance: ASPIRIN
  10. METOPROLOL SUCCINATE. [Concomitant]
     Active Substance: METOPROLOL SUCCINATE

REACTIONS (2)
  - Asthenia [None]
  - Dyspnoea [None]

NARRATIVE: CASE EVENT DATE: 20170923
